FAERS Safety Report 20446627 (Version 1)
Quarter: 2022Q1

REPORT INFORMATION
  Report Type: Spontaneous
  Country: US (occurrence: US)
  Receive Date: 20220208
  Receipt Date: 20220208
  Transmission Date: 20220423
  Serious: Yes (Hospitalization)
  Sender: FDA-Public Use
  Company Number: US-IBSA PHARMA INC.-2021IBS000149

PATIENT

DRUGS (1)
  1. TIROSINT-SOL [Suspect]
     Active Substance: LEVOTHYROXINE SODIUM
     Indication: Hypothyroidism
     Dosage: 200 ?G, QD
     Route: 048
     Dates: start: 20210727, end: 20211126

REACTIONS (5)
  - Atrial fibrillation [Recovering/Resolving]
  - Discomfort [Recovering/Resolving]
  - Hypertension [Recovered/Resolved]
  - Palpitations [Recovering/Resolving]
  - Chest pain [Recovering/Resolving]

NARRATIVE: CASE EVENT DATE: 20210101
